FAERS Safety Report 5487346-3 (Version None)
Quarter: 2007Q4

REPORT INFORMATION
  Report Type: 
  Country: None (occurrence: None)
  Receive Date: 20071016
  Receipt Date: 20071004
  Transmission Date: 20080405
  Serious: Yes (Hospitalization)
  Sender: FDA-Public Use
  Company Number: BR-PFIZER INC-2007084663

PATIENT
  Sex: Male
  Weight: 55 kg

DRUGS (3)
  1. FRONTAL [Suspect]
     Indication: NERVOUSNESS
     Route: 048
  2. SPIRIVA [Concomitant]
  3. FORASEQ [Concomitant]

REACTIONS (2)
  - EMPHYSEMA [None]
  - VISUAL DISTURBANCE [None]
